FAERS Safety Report 6329558-2 (Version None)
Quarter: 2009Q3

REPORT INFORMATION
  Report Type: 
  Country: None (occurrence: None)
  Receive Date: 20090825
  Receipt Date: 20090825
  Transmission Date: 20100115
  Serious: Yes (Other)
  Sender: FDA-Public Use
  Company Number: None

PATIENT
  Age: 50 Year
  Sex: Female
  Weight: 66.6788 kg

DRUGS (1)
  1. SINGULAIR [Suspect]
     Dosage: 10 MG 1X DAY

REACTIONS (5)
  - CHEST PAIN [None]
  - DIZZINESS [None]
  - HYPERSENSITIVITY [None]
  - MUSCLE SPASMS [None]
  - NAUSEA [None]
